FAERS Safety Report 14230684 (Version 3)
Quarter: 2017Q4

REPORT INFORMATION
  Report Type: Spontaneous
  Country: GR (occurrence: GR)
  Receive Date: 20171128
  Receipt Date: 20171221
  Transmission Date: 20180321
  Serious: Yes (Hospitalization)
  Sender: FDA-Public Use
  Company Number: GR-ELI_LILLY_AND_COMPANY-GR201710010823

PATIENT
  Age: 76 Year
  Sex: Female

DRUGS (9)
  1. FORSTEO 250UG/ML [Suspect]
     Active Substance: TERIPARATIDE
     Indication: OSTEOPOROSIS
     Dosage: 20 UG, DAILY
     Route: 058
     Dates: start: 20170825
  2. LASIX [Concomitant]
     Active Substance: FUROSEMIDE
     Indication: CARDIAC FAILURE
  3. PULMICORT TURBUHALER [Concomitant]
     Active Substance: BUDESONIDE
     Indication: RESPIRATORY DISORDER
  4. LOMAREN [Concomitant]
     Indication: PRODUCT USED FOR UNKNOWN INDICATION
  5. MICARDIS [Concomitant]
     Active Substance: TELMISARTAN
     Indication: HYPERTENSION
  6. DIGOXIN. [Concomitant]
     Active Substance: DIGOXIN
     Indication: CARDIAC FAILURE
  7. COPALIA [Concomitant]
     Active Substance: AMLODIPINE BESYLATE\VALSARTAN
     Indication: HYPERTENSION
  8. SINTROM [Concomitant]
     Active Substance: ACENOCOUMAROL
     Indication: ANTICOAGULANT THERAPY
  9. FILICINE [Concomitant]
     Indication: PRODUCT USED FOR UNKNOWN INDICATION

REACTIONS (3)
  - International normalised ratio increased [Recovered/Resolved]
  - Oedema peripheral [Not Recovered/Not Resolved]
  - Contusion [Not Recovered/Not Resolved]
